FAERS Safety Report 10609880 (Version 3)
Quarter: 2018Q2

REPORT INFORMATION
  Report Type: Report from Study
  Country: JP (occurrence: JP)
  Receive Date: 20141126
  Receipt Date: 20180622
  Transmission Date: 20180711
  Serious: Yes (Death, Other)
  Sender: FDA-Public Use
  Company Number: JP-SA-2014SA086703

PATIENT
  Age: 25 Year
  Sex: Female
  Weight: 32 kg

DRUGS (24)
  1. VANCOMYCIN [VANCOMYCIN HYDROCHLORIDE] [Concomitant]
     Route: 065
     Dates: start: 20130529, end: 20130610
  2. SANDIMMUN [Concomitant]
     Active Substance: CYCLOSPORINE
     Indication: PROPHYLAXIS AGAINST GRAFT VERSUS HOST DISEASE
     Route: 065
     Dates: start: 20130508, end: 20130624
  3. FINIBAX [Concomitant]
     Active Substance: DORIPENEM MONOHYDRATE
     Indication: FEBRILE NEUTROPENIA
     Route: 065
     Dates: start: 20130515, end: 20130528
  4. VANCOMYCIN [VANCOMYCIN HYDROCHLORIDE] [Concomitant]
     Indication: FEBRILE NEUTROPENIA
     Route: 065
     Dates: start: 20130424, end: 20130514
  5. SOLU-MEDROL [Concomitant]
     Active Substance: METHYLPREDNISOLONE SODIUM SUCCINATE
     Indication: PROPHYLAXIS
     Route: 065
     Dates: start: 20130507, end: 20130508
  6. SUPRECUR MP 1.8 [Concomitant]
     Route: 058
     Dates: start: 20130710, end: 20130710
  7. MEROPEN [MEROPENEM TRIHYDRATE] [Concomitant]
     Indication: FEBRILE NEUTROPENIA
     Route: 065
     Dates: start: 20130421, end: 20130514
  8. ANTI-THYMOCYTE GLOBULIN (RABBIT) NOS [Suspect]
     Active Substance: LAPINE T-LYMPHOCYTE IMMUNE GLOBULIN
     Indication: BONE MARROW CONDITIONING REGIMEN
     Dosage: 40 MG, QD
     Route: 042
     Dates: start: 20130507, end: 20130508
  9. METHOTREXATE. [Concomitant]
     Active Substance: METHOTREXATE
     Route: 065
     Dates: start: 20130512, end: 20130512
  10. SUPRECUR MP 1.8 [Concomitant]
     Route: 058
     Dates: start: 20130612, end: 20130612
  11. DIFLUCAN [Concomitant]
     Active Substance: FLUCONAZOLE
     Indication: ANTIFUNGAL PROPHYLAXIS
     Route: 065
     Dates: start: 20130501, end: 20140124
  12. ZOVIRAX [ACICLOVIR] [Concomitant]
     Indication: ANTIVIRAL PROPHYLAXIS
     Route: 065
     Dates: start: 20130503, end: 20140124
  13. METHOTREXATE. [Concomitant]
     Active Substance: METHOTREXATE
     Route: 065
     Dates: start: 20130515, end: 20130515
  14. SUPRECUR MP 1.8 [Concomitant]
     Indication: PROPHYLAXIS
     Route: 058
     Dates: start: 20130515, end: 20130515
  15. MAXIPIME [Concomitant]
     Active Substance: CEFEPIME HYDROCHLORIDE
     Indication: FEBRILE NEUTROPENIA
     Route: 065
     Dates: start: 20130614, end: 20130624
  16. MAXIPIME [Concomitant]
     Active Substance: CEFEPIME HYDROCHLORIDE
     Route: 065
     Dates: start: 20130707, end: 20130711
  17. MEROPEN [MEROPENEM TRIHYDRATE] [Concomitant]
     Route: 065
     Dates: start: 20130529, end: 20130614
  18. METHOTREXATE. [Concomitant]
     Active Substance: METHOTREXATE
     Indication: PROPHYLAXIS AGAINST GRAFT VERSUS HOST DISEASE
     Route: 065
     Dates: start: 20130510, end: 20130510
  19. TARGOCID 200MG [Concomitant]
     Indication: FEBRILE NEUTROPENIA
     Route: 041
     Dates: start: 20130515, end: 20130528
  20. FUNGUARD [Concomitant]
     Active Substance: MICAFUNGIN SODIUM
     Indication: ANTIFUNGAL PROPHYLAXIS
     Route: 065
     Dates: start: 20130515, end: 20130617
  21. TAKEPRON [Concomitant]
     Active Substance: LANSOPRAZOLE
     Indication: PROPHYLAXIS AGAINST GASTROINTESTINAL ULCER
     Route: 065
     Dates: start: 20130507, end: 20140123
  22. CRAVIT [Concomitant]
     Active Substance: LEVOFLOXACIN
     Indication: ANTIBIOTIC PROPHYLAXIS
     Route: 065
     Dates: start: 20130712, end: 20140124
  23. NEORAL [Concomitant]
     Active Substance: CYCLOSPORINE
     Indication: PROPHYLAXIS AGAINST GRAFT VERSUS HOST DISEASE
     Route: 048
     Dates: start: 20130625, end: 20130924
  24. OXYCONTIN [Concomitant]
     Active Substance: OXYCODONE HYDROCHLORIDE
     Indication: PAIN IN EXTREMITY
     Route: 065
     Dates: start: 20130504, end: 20130514

REACTIONS (8)
  - Thyroiditis subacute [Recovered/Resolved]
  - Decreased appetite [Not Recovered/Not Resolved]
  - Pruritus [Recovered/Resolved]
  - Myelodysplastic syndrome [Fatal]
  - Pyrexia [Recovered/Resolved]
  - Vomiting [Recovering/Resolving]
  - Insomnia [Not Recovered/Not Resolved]
  - Oral disorder [Recovering/Resolving]

NARRATIVE: CASE EVENT DATE: 20130507
